FAERS Safety Report 6518121-6 (Version None)
Quarter: 2009Q4

REPORT INFORMATION
  Report Type: 
  Country: None (occurrence: None)
  Receive Date: 20091223
  Receipt Date: 20091223
  Transmission Date: 20100525
  Serious: Yes (Hospitalization)
  Sender: FDA-Public Use
  Company Number: None

PATIENT
  Sex: Female
  Weight: 67.1324 kg

DRUGS (1)
  1. METOPROLOL TARTRATE [Suspect]
     Indication: CHEST PAIN
     Dosage: 25 MG PO
     Route: 048
     Dates: start: 20090913, end: 20090913

REACTIONS (1)
  - ATRIOVENTRICULAR BLOCK [None]
